FAERS Safety Report 14830981 (Version 2)
Quarter: 2018Q3

REPORT INFORMATION
  Report Type: Report from Study
  Country: FR (occurrence: FR)
  Receive Date: 20180430
  Receipt Date: 20180802
  Transmission Date: 20181010
  Serious: Yes (Hospitalization, Other)
  Sender: FDA-Public Use
  Company Number: FR-SHIRE-FR201816315

PATIENT

DRUGS (37)
  1. ZOPHREN [Concomitant]
     Active Substance: ONDANSETRON
     Indication: NAUSEA
  2. LOXEN [Concomitant]
     Indication: HYPERTENSION
  3. CALCIDOSE [Concomitant]
     Active Substance: CALCIUM CARBONATE
     Indication: ANTI-INFECTIVE THERAPY
  4. URSOLVAN [Concomitant]
     Active Substance: URSODIOL
     Indication: LIVER INJURY
  5. PEGASPARGASE [Suspect]
     Active Substance: PEGASPARGASE
     Indication: ACUTE LYMPHOCYTIC LEUKAEMIA
     Dosage: 1725 IU, UNK
     Route: 042
     Dates: start: 20180330, end: 20180330
  6. ADRIAMYCIN [Suspect]
     Active Substance: DOXORUBICIN HYDROCHLORIDE
     Indication: ACUTE LYMPHOCYTIC LEUKAEMIA
     Dosage: 17.6 MG, UNK
     Route: 042
     Dates: start: 20180327, end: 20180410
  7. NALBUPHINE [Concomitant]
     Active Substance: NALBUPHINE
     Indication: PAIN
  8. NALBUPHINE [Concomitant]
     Active Substance: NALBUPHINE
     Indication: ANALGESIC THERAPY
  9. POLARAMINE [Concomitant]
     Active Substance: DEXCHLORPHENIRAMINE MALEATE
     Indication: ANTIALLERGIC THERAPY
  10. VANCOMYCIN [Concomitant]
     Active Substance: VANCOMYCIN
     Indication: ANTI-INFECTIVE THERAPY
  11. RIVOTRIL [Concomitant]
     Active Substance: CLONAZEPAM
     Indication: ANALGESIC THERAPY
  12. OCTAGAM IMMUNE GLOBULIN (HUMAN) [Concomitant]
     Active Substance: HUMAN IMMUNOGLOBULIN G
     Indication: ANTI-INFECTIVE THERAPY
  13. LOXEN [Concomitant]
     Indication: BLOOD PRESSURE MEASUREMENT
  14. ROCEPHIN [Concomitant]
     Active Substance: CEFTRIAXONE SODIUM
     Indication: PRODUCT USED FOR UNKNOWN INDICATION
  15. DEXAMETHASONE. [Suspect]
     Active Substance: DEXAMETHASONE
     Indication: ACUTE LYMPHOCYTIC LEUKAEMIA
     Dosage: 7.0 MG, UNK
     Route: 048
     Dates: start: 20180327, end: 20180416
  16. ZOPHREN [Concomitant]
     Active Substance: ONDANSETRON
     Indication: VOMITING
  17. BACTRIM [Concomitant]
     Active Substance: SULFAMETHOXAZOLE\TRIMETHOPRIM
     Indication: ANTI-INFECTIVE THERAPY
  18. UVEDOSE [Concomitant]
     Active Substance: CHOLECALCIFEROL
     Indication: VITAMIN SUPPLEMENTATION
  19. DEBRIDAT [Concomitant]
     Active Substance: TRIMEBUTINE MALEATE
     Indication: ABDOMINAL PAIN
  20. METHOTREXATE. [Suspect]
     Active Substance: METHOTREXATE
     Indication: ACUTE LYMPHOCYTIC LEUKAEMIA
     Dosage: 12 MG, UNK
     Route: 037
     Dates: start: 20180330, end: 20180330
  21. AMIKLIN [Concomitant]
     Active Substance: AMIKACIN SULFATE
     Indication: ANTI-INFECTIVE THERAPY
  22. ZYLORIC [Concomitant]
     Active Substance: ALLOPURINOL
     Indication: PRODUCT USED FOR UNKNOWN INDICATION
  23. VINCRISTINE [Suspect]
     Active Substance: VINCRISTINE
     Indication: ACUTE LYMPHOCYTIC LEUKAEMIA
     Dosage: 1.1 MG, UNK
     Route: 042
     Dates: start: 20180327, end: 20180410
  24. PARACETAMOL [Concomitant]
     Active Substance: ACETAMINOPHEN
     Indication: PYREXIA
  25. NUBAIN [Concomitant]
     Active Substance: NALBUPHINE HYDROCHLORIDE
     Indication: ANALGESIC THERAPY
  26. FORLAX [Concomitant]
     Active Substance: POLYETHYLENE GLYCOL 4000
     Indication: LAXATIVE SUPPORTIVE CARE
  27. TOPALGIC [Concomitant]
     Indication: PAIN
  28. TARGOCID [Concomitant]
     Active Substance: TEICOPLANIN
     Indication: PRODUCT USED FOR UNKNOWN INDICATION
  29. CYTARABINE. [Suspect]
     Active Substance: CYTARABINE
     Indication: ACUTE LYMPHOCYTIC LEUKAEMIA
     Dosage: 30 MG, UNK
     Route: 037
     Dates: start: 20180330, end: 20180330
  30. PARACETAMOL [Concomitant]
     Active Substance: ACETAMINOPHEN
     Indication: PAIN
  31. AMBISOME [Concomitant]
     Active Substance: AMPHOTERICIN B
     Indication: ANTI-INFECTIVE THERAPY
  32. BECILAN [Concomitant]
     Active Substance: PYRIDOXINE
     Indication: VITAMIN SUPPLEMENTATION
  33. TIORFAN [Concomitant]
     Active Substance: RACECADOTRIL
     Indication: ANTIDIARRHOEAL SUPPORTIVE CARE
  34. PENTACARINAT [Concomitant]
     Active Substance: PENTAMIDINE ISETHIONATE
     Indication: ANTI-INFECTIVE THERAPY
  35. VENTOLIN [Concomitant]
     Active Substance: ALBUTEROL SULFATE
     Indication: PRODUCT USED FOR UNKNOWN INDICATION
  36. HYDROCORTISONE. [Suspect]
     Active Substance: HYDROCORTISONE
     Indication: ACUTE LYMPHOCYTIC LEUKAEMIA
     Dosage: 15 MG, UNK
     Route: 037
     Dates: start: 20180330, end: 20180330
  37. TAZOCILLINE [Concomitant]
     Active Substance: PIPERACILLIN SODIUM\TAZOBACTAM SODIUM
     Indication: ANTI-INFECTIVE THERAPY

REACTIONS (1)
  - Febrile bone marrow aplasia [Recovered/Resolved]

NARRATIVE: CASE EVENT DATE: 20180418
